FAERS Safety Report 4965766-0 (Version None)
Quarter: 2006Q2

REPORT INFORMATION
  Report Type: 
  Country: None (occurrence: None)
  Receive Date: 20060406
  Receipt Date: 20060406
  Transmission Date: 20061013
  Serious: Yes (Other)
  Sender: FDA-Public Use
  Company Number: None

PATIENT
  Sex: Female
  Weight: 68.0396 kg

DRUGS (2)
  1. ALLOPURINOL [Suspect]
     Indication: GOUT
     Dosage: 100 MG DAILY ORAL
     Route: 048
     Dates: start: 20050328, end: 20060106
  2. PLAVIX [Suspect]
     Indication: ANTIPLATELET THERAPY
     Dosage: 75 MG DAILY ORAL
     Route: 048
     Dates: start: 20050426, end: 20060202

REACTIONS (1)
  - RASH [None]
